FAERS Safety Report 10152812 (Version 1)
Quarter: 2014Q2

REPORT INFORMATION
  Report Type: Spontaneous
  Country: US (occurrence: None)
  Receive Date: 20140502
  Receipt Date: 20140502
  Transmission Date: 20141212
  Serious: No
  Sender: FDA-Public Use
  Company Number: None

PATIENT
  Age: 70 Year
  Sex: Female

DRUGS (1)
  1. FORTEO 600MCG ELI LILLY [Suspect]
     Indication: OSTEOARTHRITIS
     Dates: start: 20130601

REACTIONS (3)
  - Hypoaesthesia [None]
  - Asthenia [None]
  - Dizziness [None]
